FAERS Safety Report 5868521-2 (Version None)
Quarter: 2008Q3

REPORT INFORMATION
  Report Type: 
  Country: None (occurrence: None)
  Receive Date: 20080828
  Receipt Date: 20080813
  Transmission Date: 20090109
  Serious: Yes (Other)
  Sender: FDA-Public Use
  Company Number: SPV1-2008-01738

PATIENT
  Sex: Female

DRUGS (1)
  1. CARBATROL [Suspect]
     Indication: EPILEPSY
     Dosage: 800 MG (4 X 200MG CAPSULES), 2X/DAY:BID, ORAL
     Route: 048

REACTIONS (1)
  - CONVULSION [None]
